FAERS Safety Report 6035934-8 (Version None)
Quarter: 2009Q1

REPORT INFORMATION
  Report Type: 
  Country: None (occurrence: None)
  Receive Date: 20090113
  Receipt Date: 20090107
  Transmission Date: 20090719
  Serious: Yes (Death, Hospitalization)
  Sender: FDA-Public Use
  Company Number: B0552650A

PATIENT
  Age: 43 Year
  Sex: Male
  Weight: 70 kg

DRUGS (3)
  1. CHAMPIX [Suspect]
     Indication: SMOKING CESSATION THERAPY
     Route: 048
     Dates: start: 20081215
  2. AMOXIL [Suspect]
     Dates: start: 20081215
  3. IBUPROFEN TABLETS [Concomitant]
     Dosage: 1200MG PER DAY
     Route: 048

REACTIONS (1)
  - CARDIAC ARREST [None]
